FAERS Safety Report 7613760-3 (Version None)
Quarter: 2011Q3

REPORT INFORMATION
  Report Type: 
  Country: None (occurrence: None)
  Receive Date: 20110708
  Receipt Date: 20110627
  Transmission Date: 20111222
  Serious: Yes (Hospitalization)
  Sender: FDA-Public Use
  Company Number: DSA_47072_2011

PATIENT
  Age: 14 Year
  Sex: Male
  Weight: 47 kg

DRUGS (4)
  1. NITOMAN TAB [Suspect]
     Indication: PRODUCT USED FOR UNKNOWN INDICATION
     Dosage: 25 MG TID ORAL
     Route: 048
  2. CLONIDINE [Concomitant]
  3. BENZTROPINE MESYLATE [Concomitant]
  4. DIPHENHYDRAMINE HCL [Concomitant]

REACTIONS (2)
  - DYSTONIA [None]
  - DYSPNOEA [None]
